FAERS Safety Report 9779278 (Version 2)
Quarter: 2013Q4

REPORT INFORMATION
  Report Type: Report from Study
  Country: FR (occurrence: FR)
  Receive Date: 20131223
  Receipt Date: 20131226
  Transmission Date: 20140711
  Serious: Yes (Hospitalization)
  Sender: FDA-Public Use
  Company Number: FR-PFIZER INC-2013361421

PATIENT
  Age: 35 Year
  Sex: Male

DRUGS (2)
  1. IBUPROFEN [Suspect]
     Dosage: UNK
  2. PRISTINAMYCIN [Suspect]
     Dosage: UNK

REACTIONS (1)
  - Acute generalised exanthematous pustulosis [Recovered/Resolved]
